FAERS Safety Report 8145230 (Version 3)
Quarter: 2014Q3

REPORT INFORMATION
  Report Type: Report from Study
  Country: FR (occurrence: FR)
  Receive Date: 20110921
  Receipt Date: 20140827
  Transmission Date: 20150326
  Serious: Yes (Hospitalization)
  Sender: FDA-Public Use
  Company Number: FR-BIOGENIDEC-2011BI033799

PATIENT
  Age: 33 Year
  Sex: Female

DRUGS (2)
  1. CONCOMITANT TREATMENT NOS [Concomitant]
  2. AVONEX [Suspect]
     Active Substance: INTERFERON BETA-1A
     Indication: MULTIPLE SCLEROSIS
     Route: 030
     Dates: start: 20110603, end: 20110617

REACTIONS (2)
  - Multiple sclerosis relapse [Unknown]
  - Measles [Unknown]

NARRATIVE: CASE EVENT DATE: 201106
